FAERS Safety Report 26047025 (Version 2)
Quarter: 2025Q4

REPORT INFORMATION
  Report Type: Report from Study
  Country: US (occurrence: US)
  Receive Date: 20251114
  Receipt Date: 20251120
  Transmission Date: 20260117
  Serious: No
  Sender: BAYER HEALTHCARE PHARMACEUTICALS INC.
  Company Number: US-BAYER-2025A150285

PATIENT
  Age: 79 Year
  Sex: Male

DRUGS (10)
  1. NUBEQA [Suspect]
     Active Substance: DAROLUTAMIDE
     Indication: Prostate cancer
     Dosage: 600 MG, BID
     Route: 048
     Dates: start: 2022, end: 20251112
  2. DOXAZOSIN [Concomitant]
     Active Substance: DOXAZOSIN MESYLATE
  3. GABAPENTIN [Concomitant]
     Active Substance: GABAPENTIN
  4. LACTULOSE [Concomitant]
     Active Substance: LACTULOSE
  5. LOSARTAN [Concomitant]
     Active Substance: LOSARTAN
  6. LUPRON [Concomitant]
     Active Substance: LEUPROLIDE ACETATE
  7. METOPROLOL TARTRATE [Concomitant]
     Active Substance: METOPROLOL TARTRATE
  8. ONDANSETRON [Concomitant]
     Active Substance: ONDANSETRON
  9. PREDNISONE [Concomitant]
     Active Substance: PREDNISONE
  10. ZOLEDRONIC ACID [Concomitant]
     Active Substance: ZOLEDRONIC ACID

REACTIONS (4)
  - Dry mouth [None]
  - Polydipsia [None]
  - Pruritus [None]
  - Eye pruritus [Not Recovered/Not Resolved]

NARRATIVE: CASE EVENT DATE: 20250912
